FAERS Safety Report 18622926 (Version 2)
Quarter: 2021Q1

REPORT INFORMATION
  Report Type: Spontaneous
  Country: US (occurrence: US)
  Receive Date: 20201216
  Receipt Date: 20210105
  Transmission Date: 20210419
  Serious: No
  Sender: FDA-Public Use
  Company Number: US-JNJFOC-20201225397

PATIENT
  Age: 22 Year
  Sex: Female

DRUGS (1)
  1. SPRAVATO [Suspect]
     Active Substance: ESKETAMINE
     Indication: PRODUCT USED FOR UNKNOWN INDICATION

REACTIONS (4)
  - Product quality issue [Unknown]
  - Anxiety [Unknown]
  - Accidental exposure to product [Unknown]
  - Underdose [Unknown]

NARRATIVE: CASE EVENT DATE: 20201211
